FAERS Safety Report 7598829-4 (Version None)
Quarter: 2011Q3

REPORT INFORMATION
  Report Type: 
  Country: None (occurrence: None)
  Receive Date: 20110711
  Receipt Date: 20110630
  Transmission Date: 20111222
  Serious: No
  Sender: FDA-Public Use
  Company Number: US-BIOGENIDEC-2011BI023816

PATIENT
  Sex: Female

DRUGS (2)
  1. TYSABRI [Suspect]
     Indication: MULTIPLE SCLEROSIS
     Route: 042
     Dates: start: 20100730, end: 20110420
  2. TYSABRI [Suspect]
     Route: 042
     Dates: start: 20050701

REACTIONS (2)
  - MULTIPLE SCLEROSIS [None]
  - DRUG INEFFECTIVE [None]
